FAERS Safety Report 22386241 (Version 2)
Quarter: 2023Q2

REPORT INFORMATION
  Report Type: Spontaneous
  Country: PT (occurrence: PT)
  Receive Date: 20230530
  Receipt Date: 20230614
  Transmission Date: 20230722
  Serious: Yes (Other)
  Sender: FDA-Public Use
  Company Number: PT-MYLANLABS-2023M1051741

PATIENT
  Age: 64 Year
  Sex: Female

DRUGS (7)
  1. SUGAMMADEX SODIUM [Suspect]
     Active Substance: SUGAMMADEX SODIUM
     Indication: Anaesthesia
     Dosage: 200 MILLIGRAM (3MG/KG)
  2. ROCURONIUM BROMIDE [Concomitant]
     Active Substance: ROCURONIUM BROMIDE
     Indication: Neuromuscular blockade
     Dosage: UNK
  3. MORPHINE [Concomitant]
     Active Substance: MORPHINE
     Indication: Anaesthesia
     Dosage: UNK
     Route: 037
  4. METHYLPREDNISOLONE [Concomitant]
     Active Substance: METHYLPREDNISOLONE
     Indication: Premedication
     Dosage: 125 MILLIGRAM
  5. CLEMASTINE [Concomitant]
     Active Substance: CLEMASTINE
     Indication: Premedication
     Dosage: 2 MILLIGRAM
  6. CLINDAMYCIN [Concomitant]
     Active Substance: CLINDAMYCIN
     Indication: Antibiotic prophylaxis
     Dosage: 900 MILLIGRAM
  7. GENTAMICIN [Concomitant]
     Active Substance: GENTAMICIN
     Indication: Antibiotic prophylaxis
     Dosage: 300 MILLIGRAM

REACTIONS (1)
  - Anaphylactic reaction [Recovering/Resolving]
